FAERS Safety Report 4665817-7 (Version None)
Quarter: 2005Q2

REPORT INFORMATION
  Report Type: 
  Country: None (occurrence: None)
  Receive Date: 20050519
  Receipt Date: 20050222
  Transmission Date: 20051028
  Serious: No
  Sender: FDA-Public Use
  Company Number: US-GLAXOSMITHKLINE-A0546730A

PATIENT
  Age: 51 Year
  Sex: Female

DRUGS (7)
  1. AVODART [Suspect]
     Dosage: .5MG PER DAY
     Route: 048
     Dates: start: 20040701, end: 20050201
  2. UNKNOWN MEDICATION [Concomitant]
  3. CYTOMEL [Concomitant]
  4. ZYPREXA [Concomitant]
  5. LITHIUM [Concomitant]
  6. SYNTHROID [Concomitant]
  7. ESTRACE [Concomitant]

REACTIONS (1)
  - CUTIS LAXA [None]
